FAERS Safety Report 18298186 (Version 1)
Quarter: 2020Q3

REPORT INFORMATION
  Report Type: Spontaneous
  Country: US (occurrence: US)
  Receive Date: 20200922
  Receipt Date: 20200922
  Transmission Date: 20201103
  Serious: No
  Sender: FDA-Public Use
  Company Number: US-HORIZON-PEN-0428-2020

PATIENT
  Age: 64 Year
  Sex: Female

DRUGS (3)
  1. MELOXICAM. [Concomitant]
     Active Substance: MELOXICAM
  2. CYCLOBENZAPRINE. [Concomitant]
     Active Substance: CYCLOBENZAPRINE
  3. PENNSAID [Suspect]
     Active Substance: DICLOFENAC SODIUM
     Indication: BACK PAIN
     Dosage: HALF TO ONE PUMP ONCE A DAY AND SOMETIMES NOT EVEN THE WHOLE PUMP AS NEEDED

REACTIONS (2)
  - Taste disorder [Recovered/Resolved]
  - Off label use [Not Recovered/Not Resolved]
